FAERS Safety Report 8079643-2 (Version None)
Quarter: 2012Q1

REPORT INFORMATION
  Report Type: 
  Country: None (occurrence: None)
  Receive Date: 20120128
  Receipt Date: 20110801
  Transmission Date: 20120608
  Serious: No
  Sender: FDA-Public Use
  Company Number: US-ABBOTT-11P-163-0843421-00

PATIENT
  Sex: Female
  Weight: 36.32 kg

DRUGS (7)
  1. PREDNISONE TAB [Concomitant]
     Indication: JUVENILE ARTHRITIS
  2. HUMIRA [Suspect]
     Indication: JUVENILE ARTHRITIS
     Dates: start: 20110718
  3. FOLIC ACID [Concomitant]
     Indication: PRODUCT USED FOR UNKNOWN INDICATION
  4. MELOXICAM [Concomitant]
     Indication: JUVENILE ARTHRITIS
  5. NAPROXEN [Concomitant]
     Indication: JUVENILE ARTHRITIS
  6. METHOTREXATE [Concomitant]
     Indication: JUVENILE ARTHRITIS
  7. CONCERTA [Concomitant]
     Indication: ATTENTION DEFICIT/HYPERACTIVITY DISORDER
     Dosage: LOW DOSE

REACTIONS (5)
  - PAIN [None]
  - JOINT SWELLING [None]
  - SKIN WARM [None]
  - INJECTION SITE PAIN [None]
  - ARTHRITIS [None]
